FAERS Safety Report 23772367 (Version 3)
Quarter: 2024Q2

REPORT INFORMATION
  Report Type: Report from Study
  Country: CA (occurrence: CA)
  Receive Date: 20240423
  Receipt Date: 20240430
  Transmission Date: 20240715
  Serious: Yes (Other)
  Sender: FDA-Public Use
  Company Number: CA-002147023-NVSC2024CA047492

PATIENT
  Age: 42 Year
  Sex: Female

DRUGS (1)
  1. ILARIS [Suspect]
     Active Substance: CANAKINUMAB
     Indication: Cryopyrin associated periodic syndrome
     Dosage: 150 MG (8 WEEKS)
     Route: 058
     Dates: start: 20240222

REACTIONS (6)
  - Mental impairment [Unknown]
  - Urticaria [Not Recovered/Not Resolved]
  - Fatigue [Unknown]
  - Abdominal pain upper [Unknown]
  - Abdominal distension [Unknown]
  - Malaise [Unknown]

NARRATIVE: CASE EVENT DATE: 20240201
